FAERS Safety Report 22040832 (Version 2)
Quarter: 2023Q2

REPORT INFORMATION
  Report Type: Report from Study
  Country: US (occurrence: US)
  Receive Date: 20230227
  Receipt Date: 20230618
  Transmission Date: 20230722
  Serious: Yes (Hospitalization)
  Sender: FDA-Public Use
  Company Number: US-ARGENX-2023-ARGX-US000560

PATIENT
  Age: 37 Year
  Sex: Male

DRUGS (1)
  1. VYVGART [Suspect]
     Active Substance: EFGARTIGIMOD ALFA-FCAB
     Indication: Myasthenia gravis
     Route: 042

REACTIONS (6)
  - Pneumonia [Recovered/Resolved]
  - Myasthenia gravis [Recovered/Resolved]
  - Bronchitis [Unknown]
  - Nasal congestion [Recovered/Resolved]
  - Rhinorrhoea [Unknown]
  - Fall [Unknown]

NARRATIVE: CASE EVENT DATE: 20230201
